FAERS Safety Report 25766232 (Version 2)
Quarter: 2025Q3

REPORT INFORMATION
  Report Type: Spontaneous
  Country: US (occurrence: US)
  Receive Date: 20250905
  Receipt Date: 20250919
  Transmission Date: 20251021
  Serious: No
  Sender: SUNOVION
  Company Number: US-SMPA-2025SPA011199

PATIENT
  Age: 73 Year
  Sex: Male

DRUGS (6)
  1. ORGOVYX [Suspect]
     Active Substance: RELUGOLIX
     Indication: Prostate cancer
     Dosage: 120 MG, QD
     Route: 048
  2. ATORVASTATIN [Concomitant]
     Active Substance: ATORVASTATIN
  3. BRIMONIDINE [Concomitant]
     Active Substance: BRIMONIDINE TARTRATE
  4. CELEBREX [Concomitant]
     Active Substance: CELECOXIB
  5. CRESTOR [Concomitant]
     Active Substance: ROSUVASTATIN CALCIUM
  6. GLIMEPIRIDE [Concomitant]
     Active Substance: GLIMEPIRIDE

REACTIONS (2)
  - Fatigue [Unknown]
  - Therapy interrupted [Unknown]
